FAERS Safety Report 6050932-6 (Version None)
Quarter: 2009Q1

REPORT INFORMATION
  Report Type: 
  Country: None (occurrence: None)
  Receive Date: 20090121
  Receipt Date: 20090106
  Transmission Date: 20090719
  Serious: Yes (Hospitalization)
  Sender: FDA-Public Use
  Company Number: MPS1-1000150

PATIENT
  Age: 3 Year
  Sex: Male

DRUGS (1)
  1. ALDURAZYME [Suspect]
     Indication: MUCOPOLYSACCHARIDOSIS I
     Dosage: INTRAVENOUS
     Route: 042
     Dates: start: 20080601, end: 20081211

REACTIONS (3)
  - ANGIOEDEMA [None]
  - CONJUNCTIVITIS ALLERGIC [None]
  - SNORING [None]
